FAERS Safety Report 9306052 (Version 3)
Quarter: 2014Q1

REPORT INFORMATION
  Report Type: Report from Study
  Country: NL (occurrence: NL)
  Receive Date: 20130523
  Receipt Date: 20140303
  Transmission Date: 20141002
  Serious: Yes (Disabling, Other)
  Sender: FDA-Public Use
  Company Number: PHHY2013NL048581

PATIENT
  Age: 48 Year
  Sex: Female

DRUGS (3)
  1. GILENYA [Suspect]
     Indication: RELAPSING-REMITTING MULTIPLE SCLEROSIS
     Dosage: 0.5 MG, QD
     Route: 048
     Dates: start: 20130508, end: 20130511
  2. THYRAX [Concomitant]
     Dosage: 1 DF, QD
  3. HYDROCHOROTHIAZIDE [Concomitant]
     Dosage: 1 DF, QD

REACTIONS (4)
  - Nausea [Recovered/Resolved]
  - Chest pain [Recovered/Resolved]
  - Vomiting [Recovered/Resolved]
  - Dizziness [Recovered/Resolved]
